FAERS Safety Report 12746329 (Version 1)
Quarter: 2016Q3

REPORT INFORMATION
  Report Type: Spontaneous
  Country: US (occurrence: US)
  Receive Date: 20160915
  Receipt Date: 20160915
  Transmission Date: 20161109
  Serious: No
  Sender: FDA-Public Use
  Company Number: US-TAKEDA-2016TUS016019

PATIENT
  Age: 27 Year
  Sex: Female
  Weight: 58.96 kg

DRUGS (4)
  1. TRINTELLIX [Suspect]
     Active Substance: VORTIOXETINE HYDROBROMIDE
     Indication: ANXIETY
     Dosage: 10 MG, QD
     Route: 048
     Dates: start: 20160701
  2. PRILOSEC [Concomitant]
     Active Substance: OMEPRAZOLE MAGNESIUM
     Indication: GASTROOESOPHAGEAL REFLUX DISEASE
     Dosage: UNK, QD
     Route: 048
  3. MULTIVITAMIN                       /00097801/ [Concomitant]
     Active Substance: VITAMINS
     Dosage: UNK, QD
     Route: 048
  4. TRINTELLIX [Suspect]
     Active Substance: VORTIOXETINE HYDROBROMIDE
     Indication: DEPRESSION

REACTIONS (7)
  - Rhinorrhoea [Recovered/Resolved]
  - Lacrimation increased [Recovered/Resolved]
  - Oropharyngeal pain [Not Recovered/Not Resolved]
  - Chest pain [Not Recovered/Not Resolved]
  - Ear pain [Not Recovered/Not Resolved]
  - Dyspnoea [Recovered/Resolved]
  - Cough [Not Recovered/Not Resolved]

NARRATIVE: CASE EVENT DATE: 20160901
